FAERS Safety Report 8436050-8 (Version None)
Quarter: 2012Q2

REPORT INFORMATION
  Report Type: 
  Country: None (occurrence: None)
  Receive Date: 20120614
  Receipt Date: 20110715
  Transmission Date: 20120825
  Serious: No
  Sender: FDA-Public Use
  Company Number: US-ASTRAZENECA-2010SE51992

PATIENT
  Age: 74 Year
  Sex: Male
  Weight: 80.7 kg

DRUGS (2)
  1. ZOLADEX [Suspect]
     Route: 058
     Dates: start: 20101006
  2. ZOLADEX [Suspect]
     Indication: PROSTATE CANCER
     Route: 058
     Dates: start: 20060101

REACTIONS (11)
  - ANXIETY [None]
  - BLOOD TESTOSTERONE ABNORMAL [None]
  - PROSTATIC SPECIFIC ANTIGEN INCREASED [None]
  - PAIN [None]
  - BLOOD CHOLESTEROL INCREASED [None]
  - DRUG DOSE OMISSION [None]
  - BONE DENSITY DECREASED [None]
  - FLUID RETENTION [None]
  - BODY HEIGHT DECREASED [None]
  - BACK PAIN [None]
  - WRONG TECHNIQUE IN DRUG USAGE PROCESS [None]
